FAERS Safety Report 8174994-5 (Version None)
Quarter: 2012Q1

REPORT INFORMATION
  Report Type: 
  Country: None (occurrence: None)
  Receive Date: 20120229
  Receipt Date: 20120220
  Transmission Date: 20120608
  Serious: Yes (Other)
  Sender: FDA-Public Use
  Company Number: PHHY2011US18751

PATIENT
  Sex: Female

DRUGS (6)
  1. DIOVAN HCT [Suspect]
     Dosage: UNK UKN, UNK
  2. TEKAMLO [Suspect]
     Dosage: 300 MG ALIS AND 10 MG AMLO, 1 DF
     Dates: end: 20110415
  3. TEKTURNA HCT [Suspect]
     Dosage: UNK UKN, UNK
  4. TEKTURNA [Suspect]
     Dosage: 300 MG, QD
  5. DIOVAN [Suspect]
     Dosage: 80 MG, UNK
  6. ASPIRIN [Concomitant]
     Dosage: 81 MG, UNK

REACTIONS (14)
  - RENAL IMPAIRMENT [None]
  - OEDEMA MOUTH [None]
  - SWOLLEN TONGUE [None]
  - RASH [None]
  - URINARY INCONTINENCE [None]
  - URINE FLOW DECREASED [None]
  - DRUG INEFFECTIVE [None]
  - BLOOD URINE PRESENT [None]
  - OEDEMA PERIPHERAL [None]
  - RENAL PAIN [None]
  - BLOOD PRESSURE INCREASED [None]
  - DYSURIA [None]
  - LIP SWELLING [None]
  - PHARYNGEAL OEDEMA [None]
